FAERS Safety Report 10939808 (Version 1)
Quarter: 2015Q1

REPORT INFORMATION
  Report Type: Spontaneous
  Country: US (occurrence: None)
  Receive Date: 20150212
  Receipt Date: 20150212
  Transmission Date: 20150721
  Serious: No
  Sender: FDA-Public Use
  Company Number: TPA2010A05966

PATIENT
  Age: 66 Year
  Sex: Male
  Weight: 73.48 kg

DRUGS (5)
  1. FLAXSEED OIL (LINUM USITATISSIMUM SEED OIL) [Concomitant]
  2. ULORIC [Suspect]
     Active Substance: FEBUXOSTAT
     Indication: GOUT
     Dosage: 1 IN 1 D
     Route: 048
     Dates: start: 20101022, end: 20101122
  3. CRESTOR [Concomitant]
     Active Substance: ROSUVASTATIN CALCIUM
  4. INDOMETHACIN (INDOMETACIN) [Concomitant]
     Active Substance: INDOMETHACIN
  5. ASPIRIN (ACETYLSALCICYLIC ACID) [Concomitant]

REACTIONS (3)
  - Gout [None]
  - Drug dispensing error [None]
  - Condition aggravated [None]

NARRATIVE: CASE EVENT DATE: 20101022
